FAERS Safety Report 16784203 (Version 1)
Quarter: 2019Q3

REPORT INFORMATION
  Report Type: Spontaneous
  Country: JP (occurrence: JP)
  Receive Date: 20190909
  Receipt Date: 20190909
  Transmission Date: 20191005
  Serious: Yes (Other)
  Sender: FDA-Public Use
  Company Number: JP-TEVA-2019-JP-005418J

PATIENT
  Age: 53 Year
  Sex: Female

DRUGS (1)
  1. METOCLOPRAMIDE TABLET 5MG ^TEVA^ [Suspect]
     Active Substance: METOCLOPRAMIDE
     Indication: NAUSEA
     Route: 048
     Dates: start: 20190707

REACTIONS (12)
  - Neutrophil count increased [Unknown]
  - Urinary retention [Unknown]
  - Hyponatraemia [Unknown]
  - Pollakiuria [Unknown]
  - Cystitis [Unknown]
  - Cancer pain [Unknown]
  - Urine ketone body present [Unknown]
  - Hypochloraemia [Unknown]
  - Lymphocyte count decreased [Unknown]
  - Breast swelling [Unknown]
  - Bladder pain [Unknown]
  - Haematuria [Unknown]

NARRATIVE: CASE EVENT DATE: 20190708
